FAERS Safety Report 6897148-9 (Version None)
Quarter: 2010Q3

REPORT INFORMATION
  Report Type: 
  Country: None (occurrence: None)
  Receive Date: 20100802
  Receipt Date: 20070416
  Transmission Date: 20110219
  Serious: No
  Sender: FDA-Public Use
  Company Number: US-PFIZER INC-2007031210

PATIENT
  Sex: Male
  Weight: 136.36 kg

DRUGS (6)
  1. LYRICA [Suspect]
     Indication: PERONEAL MUSCULAR ATROPHY
     Dates: start: 20070301
  2. ACYCLOVIR [Concomitant]
  3. PREDNISOLONE [Concomitant]
  4. PRED FORTE [Concomitant]
  5. FOLTX [Concomitant]
  6. LIPITOR [Concomitant]

REACTIONS (1)
  - ARTHRALGIA [None]
